FAERS Safety Report 4767969-7 (Version None)
Quarter: 2005Q3

REPORT INFORMATION
  Report Type: 
  Country: None (occurrence: None)
  Receive Date: 20050913
  Receipt Date: 20050830
  Transmission Date: 20060218
  Serious: Yes (Other)
  Sender: FDA-Public Use
  Company Number: US-2005-004437

PATIENT
  Sex: Female

DRUGS (1)
  1. ULTRAVIST (PHARMACY BULK) [Suspect]
     Dosage: UNK
     Route: 065
     Dates: start: 20050304, end: 20050304

REACTIONS (2)
  - FACIAL PALSY [None]
  - POST PROCEDURAL COMPLICATION [None]
